FAERS Safety Report 4315872-9 (Version None)
Quarter: 2004Q1

REPORT INFORMATION
  Report Type: 
  Country: None (occurrence: None)
  Receive Date: 20040311
  Receipt Date: 20031224
  Transmission Date: 20041129
  Serious: Yes (Death, Hospitalization)
  Sender: FDA-Public Use
  Company Number: US-BRISTOL-MYERS SQUIBB COMPANY-12464848

PATIENT
  Age: 68 Year
  Sex: Female
  Weight: 135 kg

DRUGS (11)
  1. PACLITAXEL [Suspect]
     Indication: OVARIAN CANCER
     Dosage: THERAPY START DATE 23-SEP-2003  175 MG/M^2
     Route: 042
     Dates: start: 20031118, end: 20031118
  2. CARBOPLATIN [Suspect]
     Indication: OVARIAN CANCER
     Dosage: THERAPY START DATE 23-SEP-2003
     Route: 042
     Dates: start: 20031118, end: 20031118
  3. LEVAQUIN [Concomitant]
     Dates: end: 20031202
  4. LEXAPRO [Concomitant]
  5. SINGULAIR [Concomitant]
  6. ADVAIR DISKUS 100/50 [Concomitant]
  7. ALBUTEROL [Concomitant]
  8. CATAPRES [Concomitant]
  9. LORTAB [Concomitant]
  10. COMPAZINE [Concomitant]
  11. ATIVAN [Concomitant]

REACTIONS (23)
  - ANAEMIA [None]
  - ASTHENIA [None]
  - BACTERIAL INFECTION [None]
  - CANDIDIASIS [None]
  - DECREASED APPETITE [None]
  - DEHYDRATION [None]
  - EAR PAIN [None]
  - EMPHYSEMA [None]
  - FATIGUE [None]
  - FEBRILE NEUTROPENIA [None]
  - LOBAR PNEUMONIA [None]
  - NAUSEA [None]
  - OTORRHOEA [None]
  - PHARYNGITIS [None]
  - PLATELET COUNT DECREASED [None]
  - PNEUMONIA [None]
  - PNEUMONIA PNEUMOCOCCAL [None]
  - PRODUCTIVE COUGH [None]
  - RENAL FAILURE [None]
  - RENAL FAILURE ACUTE [None]
  - SEPSIS [None]
  - SINUS CONGESTION [None]
  - VOMITING [None]
